FAERS Safety Report 9990506 (Version 2)
Quarter: 2014Q2

REPORT INFORMATION
  Report Type: Spontaneous
  Country: US (occurrence: US)
  Receive Date: 20140310
  Receipt Date: 20140425
  Transmission Date: 20141212
  Serious: No
  Sender: FDA-Public Use
  Company Number: US-PFIZER INC-2014066384

PATIENT
  Age: 59 Year
  Sex: Female

DRUGS (9)
  1. LIPITOR [Suspect]
     Dosage: UNK
  2. MORPHINE SULFATE [Suspect]
     Dosage: UNK
  3. ALEVE [Suspect]
     Dosage: UNK
  4. CODEINE [Suspect]
     Dosage: UNK
  5. DARVOCET [Suspect]
     Dosage: UNK
  6. DARVOCET-N 100 [Suspect]
     Dosage: UNK
  7. TOLECTIN [Suspect]
     Dosage: UNK
  8. TYLENOL SINUS [Suspect]
     Dosage: UNK
  9. VIOXX [Suspect]
     Dosage: UNK

REACTIONS (1)
  - Drug hypersensitivity [Unknown]
